FAERS Safety Report 10006056 (Version 14)
Quarter: 2014Q3

REPORT INFORMATION
  Report Type: Spontaneous
  Country: US (occurrence: US)
  Receive Date: 20140313
  Receipt Date: 20140814
  Transmission Date: 20150326
  Serious: Yes (Hospitalization, Other)
  Sender: FDA-Public Use
  Company Number: US-JNJFOC-20140304046

PATIENT
  Sex: Male

DRUGS (2)
  1. XARELTO [Suspect]
     Active Substance: RIVAROXABAN
     Indication: CEREBROVASCULAR ACCIDENT PROPHYLAXIS
     Route: 048
     Dates: end: 201403
  2. XARELTO [Suspect]
     Active Substance: RIVAROXABAN
     Indication: ATRIAL FIBRILLATION
     Route: 048
     Dates: end: 201403

REACTIONS (9)
  - Toxicity to various agents [Recovered/Resolved]
  - Gastrointestinal haemorrhage [Recovered/Resolved]
  - International normalised ratio increased [Recovered/Resolved]
  - Haematocrit decreased [Not Recovered/Not Resolved]
  - Fall [Recovered/Resolved]
  - Blood creatinine increased [Recovered/Resolved]
  - Dehydration [Recovered/Resolved]
  - Contusion [Not Recovered/Not Resolved]
  - Hypotension [Recovered/Resolved]

NARRATIVE: CASE EVENT DATE: 201403
